FAERS Safety Report 4433828-2 (Version None)
Quarter: 2004Q3

REPORT INFORMATION
  Report Type: 
  Country: None (occurrence: None)
  Receive Date: 20040825
  Receipt Date: 20040825
  Transmission Date: 20050211
  Serious: Yes (Other)
  Sender: FDA-Public Use
  Company Number: None

PATIENT
  Age: 74 Year
  Sex: Male
  Weight: 94.3 kg

DRUGS (4)
  1. TERAZOSIN HCL [Suspect]
  2. SIMVASTATIN [Concomitant]
  3. SILDENAFIL CITRATE [Concomitant]
  4. TERAZOSIN HCL [Concomitant]

REACTIONS (2)
  - DIZZINESS [None]
  - HYPOTENSION [None]
